FAERS Safety Report 22360174 (Version 1)
Quarter: 2023Q2

REPORT INFORMATION
  Report Type: Report from Study
  Country: US (occurrence: US)
  Receive Date: 20230524
  Receipt Date: 20230524
  Transmission Date: 20230722
  Serious: Yes (Other)
  Sender: FDA-Public Use
  Company Number: US-002147023-NVSC2023US114646

PATIENT
  Sex: Male
  Weight: 113.38 kg

DRUGS (4)
  1. CLOBETASOL [Suspect]
     Active Substance: CLOBETASOL
     Indication: Psoriasis
     Dosage: UNK
     Route: 065
  2. AMOXICILLIN [Suspect]
     Active Substance: AMOXICILLIN
     Indication: Psoriasis
     Dosage: UNK
     Route: 065
  3. CEPHALEXIN [Suspect]
     Active Substance: CEPHALEXIN
     Indication: Psoriasis
     Dosage: UNK
     Route: 065
  4. BACITRACIN [Suspect]
     Active Substance: BACITRACIN
     Indication: Psoriasis
     Dosage: UNK
     Route: 065

REACTIONS (12)
  - Psoriatic arthropathy [Unknown]
  - Rash pruritic [Unknown]
  - Pain [Unknown]
  - Skin exfoliation [Unknown]
  - Lentigo [Unknown]
  - Seborrhoeic keratosis [Unknown]
  - Papule [Unknown]
  - Haemangioma of skin [Unknown]
  - Hordeolum [Unknown]
  - Burning sensation [Unknown]
  - Product use in unapproved indication [Unknown]
  - Treatment failure [Unknown]
